FAERS Safety Report 4575639-3 (Version None)
Quarter: 2005Q1

REPORT INFORMATION
  Report Type: 
  Country: None (occurrence: None)
  Receive Date: 20050209
  Receipt Date: 20050128
  Transmission Date: 20050727
  Serious: Yes (Other)
  Sender: FDA-Public Use
  Company Number: AU-GLAXOSMITHKLINE-B0370120A

PATIENT
  Age: 52 Year
  Sex: Female

DRUGS (1)
  1. IMIGRAN [Suspect]
     Indication: MIGRAINE
     Dosage: 6MG PER DAY
     Dates: start: 19950214, end: 19950214

REACTIONS (3)
  - ANGIONEUROTIC OEDEMA [None]
  - BACK PAIN [None]
  - DYSPHAGIA [None]
